FAERS Safety Report 14374513 (Version 2)
Quarter: 2018Q1

REPORT INFORMATION
  Report Type: Spontaneous
  Country: CZ (occurrence: CZ)
  Receive Date: 20180111
  Receipt Date: 20180128
  Transmission Date: 20180509
  Serious: Yes (Hospitalization)
  Sender: FDA-Public Use
  Company Number: CZ-B.I. PHARMACEUTICALS,INC./RIDGEFIELD-2018-BI-000798

PATIENT
  Age: 75 Year
  Sex: Male

DRUGS (1)
  1. PRADAXA [Suspect]
     Active Substance: DABIGATRAN ETEXILATE MESYLATE
     Indication: CEREBROVASCULAR ACCIDENT PROPHYLAXIS
     Route: 048
     Dates: end: 201611

REACTIONS (5)
  - Coagulopathy [Recovered/Resolved]
  - Acute kidney injury [Unknown]
  - Haematuria [Unknown]
  - Overdose [Recovered/Resolved]
  - Bladder tamponade [Unknown]

NARRATIVE: CASE EVENT DATE: 201611
